FAERS Safety Report 8989766 (Version 1)
Quarter: 2012Q4

REPORT INFORMATION
  Report Type: 
  Country: US (occurrence: US)
  Receive Date: 20121228
  Receipt Date: 20121228
  Transmission Date: 20130627
  Serious: Yes (Other)
  Sender: FDA-Public Use
  Company Number: US-ASTRAZENECA-2012SE95176

PATIENT
  Age: 66 Year
  Sex: Female
  Weight: 85.3 kg

DRUGS (13)
  1. SYMBICORT PMDI [Suspect]
     Indication: ASTHMA
     Dosage: 160 MCG, TWO PUFFS BID
     Route: 055
     Dates: start: 2009
  2. SYMBICORT PMDI [Suspect]
     Indication: ASTHMA
     Dosage: 160 MCG, TWO PUFFS AT NIGHT
     Route: 055
     Dates: start: 2009
  3. NEXIUM [Suspect]
     Indication: GASTROOESOPHAGEAL REFLUX DISEASE
     Route: 048
     Dates: start: 2005, end: 2005
  4. OMEPRAZOLE [Suspect]
     Route: 048
  5. CLOZARIL [Concomitant]
     Indication: SCHIZOPHRENIA
     Route: 048
     Dates: start: 1995
  6. VESICARE [Concomitant]
     Indication: INCONTINENCE
     Route: 048
     Dates: start: 2005
  7. SINGULAIR [Concomitant]
     Route: 048
     Dates: start: 2006
  8. GLIPIZIDE [Concomitant]
     Indication: DIABETES MELLITUS
     Route: 048
     Dates: start: 2010
  9. METFORMIN [Concomitant]
     Indication: DIABETES MELLITUS
     Route: 048
     Dates: start: 2004
  10. METFORMIN [Concomitant]
     Indication: DIABETES MELLITUS
     Route: 048
     Dates: start: 2004
  11. ALBUTEROL [Concomitant]
     Indication: ASTHMA
     Dosage: TWO PUFFS DAILY
     Route: 055
     Dates: start: 2006
  12. ALBUTEROL [Concomitant]
     Indication: ASTHMA
     Dosage: AS REQUIRED
     Route: 055
     Dates: start: 2006
  13. IPATROPIUM [Concomitant]
     Indication: ASTHMA
     Dosage: TWO PUFFS ONCE DAILY
     Route: 055
     Dates: start: 2007

REACTIONS (7)
  - Plasma cell myeloma [Unknown]
  - Herpes zoster [Unknown]
  - Off label use [Unknown]
  - Chest discomfort [Unknown]
  - Dysphonia [Unknown]
  - Seasonal allergy [Unknown]
  - Cystitis [Unknown]
